FAERS Safety Report 6297074-2 (Version None)
Quarter: 2009Q3

REPORT INFORMATION
  Report Type: 
  Country: None (occurrence: None)
  Receive Date: 20090804
  Receipt Date: 20090730
  Transmission Date: 20100115
  Serious: Yes (Hospitalization)
  Sender: FDA-Public Use
  Company Number: JP-ABBOTT-08P-163-0494465-00

PATIENT
  Sex: Female
  Weight: 36 kg

DRUGS (13)
  1. HUMIRA [Suspect]
     Indication: RHEUMATOID ARTHRITIS
     Route: 058
     Dates: start: 20081113, end: 20081127
  2. HUMIRA [Suspect]
     Route: 058
     Dates: start: 20090310, end: 20090421
  3. ISONIAZID [Concomitant]
     Indication: ANTIBIOTIC PROPHYLAXIS
     Dosage: 300 MG DAILY
     Route: 048
     Dates: start: 20081023, end: 20081211
  4. METHOTREXATE [Concomitant]
     Indication: RHEUMATOID ARTHRITIS
     Route: 048
     Dates: start: 19980601, end: 20081207
  5. METHOTREXATE [Concomitant]
     Dates: start: 20090109, end: 20090503
  6. METHOTREXATE [Concomitant]
     Dates: start: 20090512
  7. INDOMETACIN FARNESIL [Concomitant]
     Indication: RHEUMATOID ARTHRITIS
     Dosage: 400 MG DAILY
     Route: 048
     Dates: start: 19991119, end: 20081211
  8. INDOMETACIN FARNESIL [Concomitant]
     Dosage: 400 MG DAILY
     Route: 048
     Dates: start: 20081219, end: 20090407
  9. FOLIC ACID [Concomitant]
     Indication: PROPHYLAXIS
     Route: 048
     Dates: start: 20060112
  10. ALENDRONATE SODIUM [Concomitant]
     Indication: OSTEOPOROSIS
     Dosage: 5 MG DAILY
     Route: 048
     Dates: start: 20011227
  11. CALCIUM L-ASPARATE HYDRATE [Concomitant]
     Indication: OSTEOPOROSIS
     Dosage: 600 MG DAILY
     Route: 048
     Dates: start: 20060323
  12. ALFACALCIDOL [Concomitant]
     Indication: OSTEOPOROSIS
     Dosage: 0.5 MCG DAILY
     Route: 048
     Dates: start: 19931001
  13. INFLUENZA VACCINE [Concomitant]
     Indication: INFLUENZA IMMUNISATION
     Dates: start: 20081203, end: 20081203

REACTIONS (1)
  - ENTEROCOLITIS BACTERIAL [None]
